FAERS Safety Report 5293656-5 (Version None)
Quarter: 2007Q1

REPORT INFORMATION
  Report Type: 
  Country: None (occurrence: None)
  Receive Date: 20070116
  Receipt Date: 20060217
  Transmission Date: 20070707
  Serious: Yes (Other)
  Sender: FDA-Public Use
  Company Number: HQWYE659730JUL04

PATIENT
  Age: 52 Year
  Sex: Female

DRUGS (4)
  1. PREMPRO [Suspect]
     Indication: HORMONE REPLACEMENT THERAPY
  2. CYCRIN (CONJUGATED ESTROGENS, TABLET, UNSPEC) [Suspect]
  3. ESTRACE [Suspect]
  4. ESTRADIOL [Suspect]

REACTIONS (1)
  - BREAST CANCER [None]
